FAERS Safety Report 6946566-9 (Version None)
Quarter: 2010Q3

REPORT INFORMATION
  Report Type: 
  Country: None (occurrence: None)
  Receive Date: 20100827
  Receipt Date: 20090804
  Transmission Date: 20110219
  Serious: No
  Sender: FDA-Public Use
  Company Number: US-ABBOTT-09P-163-0589211-00

PATIENT
  Sex: Female
  Weight: 60.382 kg

DRUGS (13)
  1. NIASPAN [Suspect]
     Indication: BLOOD CHOLESTEROL INCREASED
     Dates: start: 20081101, end: 20081201
  2. NIASPAN [Suspect]
     Dates: start: 20081201, end: 20090101
  3. NIASPAN [Suspect]
     Dates: start: 20090101
  4. PREVACHOL [Concomitant]
     Indication: BLOOD CHOLESTEROL INCREASED
  5. ALFALFA [Concomitant]
     Indication: ARTHRITIS
  6. TUMS [Concomitant]
     Indication: GASTROOESOPHAGEAL REFLUX DISEASE
  7. PRILOSEC [Concomitant]
     Indication: GASTROOESOPHAGEAL REFLUX DISEASE
  8. CALCIUM [Concomitant]
     Indication: OSTEOPENIA
  9. TYLENOL-500 [Concomitant]
     Indication: ARTHRITIS
  10. ACTOS [Concomitant]
     Indication: GLUCOSE TOLERANCE IMPAIRED
  11. LISINOPRIL [Concomitant]
     Indication: HYPERTENSION
  12. EVISTA [Concomitant]
     Indication: OSTEOPENIA
  13. LOVASA [Concomitant]
     Indication: BLOOD CHOLESTEROL INCREASED

REACTIONS (5)
  - EYE DISCHARGE [None]
  - EYE IRRITATION [None]
  - EYE PRURITUS [None]
  - EYE SWELLING [None]
  - SNEEZING [None]
